FAERS Safety Report 15835616 (Version 2)
Quarter: 2019Q1

REPORT INFORMATION
  Report Type: Other
  Country: DK (occurrence: DK)
  Receive Date: 20190117
  Receipt Date: 20190214
  Transmission Date: 20190417
  Serious: Yes (Hospitalization, Other)
  Sender: FDA-Public Use
  Company Number: DK-CELLTRION INC.-2019DK017816

PATIENT

DRUGS (1)
  1. RITUXIMAB (UNKNOWN) [Suspect]
     Active Substance: RITUXIMAB
     Dosage: 700 MG IN NACL 9 MG/ML, 500 ML, ^MAGISTREL PRODUCTION^ BASED ON RITEMVIA (RITUXIMAB), CONC. FOR INFU
     Route: 042
     Dates: start: 20181217, end: 20181217

REACTIONS (2)
  - Respiratory disorder [Recovered/Resolved]
  - Loss of consciousness [Recovered/Resolved]

NARRATIVE: CASE EVENT DATE: 20181217
